FAERS Safety Report 10522652 (Version 1)
Quarter: 2014Q4

REPORT INFORMATION
  Report Type: Spontaneous
  Country: US (occurrence: None)
  Receive Date: 20141010
  Receipt Date: 20141010
  Transmission Date: 20150528
  Serious: Yes (Other)
  Sender: FDA-Public Use
  Company Number: PT14-361-AE

PATIENT
  Age: 46 Year
  Sex: Female
  Weight: 66.23 kg

DRUGS (9)
  1. FLOVENT 110 MG INHALER [Concomitant]
  2. HUMALOG [Concomitant]
     Active Substance: INSULIN LISPRO
  3. AMLODIPINE BESYLATE. [Concomitant]
     Active Substance: AMLODIPINE BESYLATE
  4. DEMECLOCYCLINE HCL [Suspect]
     Active Substance: DEMECLOCYCLINE HYDROCHLORIDE
     Indication: BLOOD SODIUM ABNORMAL
     Dosage: 2 TABLETS
     Route: 048
     Dates: start: 20131021, end: 20140815
  5. VALSARTAN HCL [Concomitant]
  6. LIOTHYRONINE [Concomitant]
     Active Substance: LIOTHYRONINE
  7. LEVOTHYROXINE [Concomitant]
     Active Substance: LEVOTHYROXINE
  8. DEMECLOCYCLINE HCL [Suspect]
     Active Substance: DEMECLOCYCLINE HYDROCHLORIDE
     Indication: FLUID RETENTION
     Dosage: 2 TABLETS
     Route: 048
     Dates: start: 20131021, end: 20140815
  9. LANTUS SOLOSTAR [Concomitant]
     Active Substance: INSULIN GLARGINE

REACTIONS (6)
  - Diabetes insipidus [None]
  - Stomatitis [None]
  - Malaise [None]
  - Asthenia [None]
  - Pollakiuria [None]
  - Dyspnoea [None]

NARRATIVE: CASE EVENT DATE: 201401
